FAERS Safety Report 21888494 (Version 5)
Quarter: 2023Q1

REPORT INFORMATION
  Report Type: Spontaneous
  Country: US (occurrence: US)
  Receive Date: 20230120
  Receipt Date: 20230307
  Transmission Date: 20230418
  Serious: Yes (Other)
  Sender: FDA-Public Use
  Company Number: US-GLAXOSMITHKLINE-US2023AMR007340

PATIENT

DRUGS (2)
  1. ZEJULA [Suspect]
     Active Substance: NIRAPARIB
     Indication: Ovarian cancer
     Dosage: 200 MG, QD
     Dates: start: 20230105
  2. ZEJULA [Suspect]
     Active Substance: NIRAPARIB
     Dosage: 1 DF, QD

REACTIONS (19)
  - Renal impairment [Unknown]
  - Small intestinal obstruction [Unknown]
  - Nausea [Unknown]
  - Abdominal pain upper [Unknown]
  - Flatulence [Unknown]
  - Constipation [Unknown]
  - Asthenia [Not Recovered/Not Resolved]
  - Gastrointestinal motility disorder [Unknown]
  - Fatigue [Unknown]
  - Decreased appetite [Unknown]
  - Visual impairment [Unknown]
  - Pain [Unknown]
  - Dehydration [Unknown]
  - Red blood cell count decreased [Unknown]
  - Feeling abnormal [Unknown]
  - Weight decreased [Unknown]
  - Dry mouth [Unknown]
  - Scar [Unknown]
  - Blood potassium decreased [Unknown]
